FAERS Safety Report 7633925-4 (Version None)
Quarter: 2011Q3

REPORT INFORMATION
  Report Type: 
  Country: None (occurrence: None)
  Receive Date: 20110725
  Receipt Date: 20110713
  Transmission Date: 20111222
  Serious: Yes (Other)
  Sender: FDA-Public Use
  Company Number: US-JNJFOC-20110706465

PATIENT
  Sex: Female
  Weight: 50 kg

DRUGS (8)
  1. ACETAMINOPHEN [Concomitant]
     Dates: start: 20090225, end: 20101222
  2. ANTIHISTAMINES [Concomitant]
     Indication: PREMEDICATION
     Dates: start: 20071214, end: 20081107
  3. ANTIHISTAMINES [Concomitant]
     Dates: start: 20090225, end: 20101222
  4. REMICADE [Suspect]
     Indication: CROHN'S DISEASE
     Route: 042
     Dates: start: 20071214, end: 20101222
  5. VITAMIN D [Concomitant]
     Indication: CROHN'S DISEASE
  6. MERCAPTOPURINE [Concomitant]
     Indication: CROHN'S DISEASE
  7. FOLIC ACID [Concomitant]
     Indication: CROHN'S DISEASE
  8. ACETAMINOPHEN [Concomitant]
     Indication: PREMEDICATION
     Dates: start: 20071214, end: 20081107

REACTIONS (1)
  - OVARIAN GERM CELL TERATOMA BENIGN [None]
